FAERS Safety Report 23068561 (Version 1)
Quarter: 2023Q4

REPORT INFORMATION
  Report Type: Spontaneous
  Country: US (occurrence: US)
  Receive Date: 20231016
  Receipt Date: 20231016
  Transmission Date: 20240110
  Serious: Yes (Life-Threatening, Hospitalization, Other)
  Sender: FDA-Public Use
  Company Number: US-EPICPHARMA-US-2023EPCLIT01480

PATIENT
  Age: 32 Year
  Sex: Female

DRUGS (2)
  1. VENLAFAXINE HYDROCHLORIDE [Suspect]
     Active Substance: VENLAFAXINE HYDROCHLORIDE
     Indication: Product used for unknown indication
     Dosage: EXTENDED-RELEASE
     Route: 065
  2. GABAPENTIN [Concomitant]
     Active Substance: GABAPENTIN
     Indication: Product used for unknown indication
     Route: 065

REACTIONS (7)
  - Cardiogenic shock [Recovered/Resolved]
  - Generalised tonic-clonic seizure [Recovered/Resolved]
  - Ejection fraction abnormal [Recovered/Resolved]
  - Hypotension [Recovered/Resolved]
  - Electrocardiogram QRS complex abnormal [Recovered/Resolved]
  - Ventricular tachycardia [Recovered/Resolved]
  - Intentional overdose [Unknown]
